FAERS Safety Report 8467774-4 (Version None)
Quarter: 2012Q2

REPORT INFORMATION
  Report Type: 
  Country: None (occurrence: None)
  Receive Date: 20120626
  Receipt Date: 20120619
  Transmission Date: 20120825
  Serious: Yes (Hospitalization)
  Sender: FDA-Public Use
  Company Number: BE-CELGENEUS-013-20785-12062732

PATIENT
  Sex: Female
  Weight: 53 kg

DRUGS (10)
  1. MELPHALAN HYDROCHLORIDE [Suspect]
     Indication: MULTIPLE MYELOMA
     Route: 048
     Dates: start: 20111104, end: 20120426
  2. CRESTOR [Concomitant]
     Route: 048
     Dates: start: 20070101
  3. PREDNISONE TAB [Suspect]
     Indication: MULTIPLE MYELOMA
     Route: 048
     Dates: start: 20111104, end: 20120426
  4. THALIDOMIDE [Suspect]
     Indication: MULTIPLE MYELOMA
     Dosage: 100 MILLIGRAM
     Route: 048
     Dates: start: 20111230, end: 20120502
  5. THALIDOMIDE [Suspect]
     Dosage: 200 MILLIGRAM
     Route: 048
     Dates: start: 20111104, end: 20111229
  6. ASPIRIN [Concomitant]
     Route: 048
     Dates: start: 20111102
  7. HYDROCORTISONE ACETATE [Concomitant]
     Indication: ADDISON'S DISEASE
     Route: 048
     Dates: start: 19970101
  8. OMEPRAZOLE [Concomitant]
     Route: 048
     Dates: start: 20111102
  9. LEVOTHYROXINE SODIUM [Concomitant]
     Indication: HYPOTHYROIDISM
     Route: 048
  10. XANAX [Concomitant]
     Indication: SEDATIVE THERAPY
     Route: 048

REACTIONS (1)
  - GENERAL PHYSICAL HEALTH DETERIORATION [None]
